FAERS Safety Report 6701100-3 (Version None)
Quarter: 2010Q2

REPORT INFORMATION
  Report Type: 
  Country: None (occurrence: None)
  Receive Date: 20100428
  Receipt Date: 20100416
  Transmission Date: 20101027
  Serious: Yes (Hospitalization, Other)
  Sender: FDA-Public Use
  Company Number: JP-ELI_LILLY_AND_COMPANY-JP201004002571

PATIENT
  Sex: Female

DRUGS (12)
  1. STRATTERA [Suspect]
     Indication: ATTENTION DEFICIT/HYPERACTIVITY DISORDER
     Dosage: 10 MG, 2/D
     Route: 048
     Dates: start: 20090819, end: 20090901
  2. STRATTERA [Suspect]
     Dosage: 10 MG/MORNING, 25 MG/EVENING
     Route: 048
     Dates: start: 20090902, end: 20090915
  3. STRATTERA [Suspect]
     Dosage: 25 MG, 2/D
     Route: 048
     Dates: start: 20090916, end: 20090929
  4. STRATTERA [Suspect]
     Dosage: 25 MG/MORNING, 50 MG/EVENING
     Dates: start: 20090930, end: 20091108
  5. STRATTERA [Suspect]
     Dosage: 35 MG/MORNING, 50 MG/EVENING
     Route: 048
     Dates: start: 20091109, end: 20100202
  6. STRATTERA [Suspect]
     Dosage: 50 MG, 2/D
     Route: 048
     Dates: start: 20100203, end: 20100201
  7. STRATTERA [Suspect]
     Dosage: 50 MG, DAILY (1/D)
     Route: 048
     Dates: start: 20100201, end: 20100208
  8. PHENYTOIN SODIUM [Concomitant]
     Indication: EPILEPSY
     Dosage: 25 MG, EACH EVENING
     Route: 048
  9. PHENYTOIN SODIUM [Concomitant]
     Dosage: 200 MG, 2/D
     Route: 048
  10. MYSTAN [Concomitant]
     Indication: EPILEPSY
     Dosage: 10 MG, EACH EVENING
     Route: 048
  11. RIVOTRIL [Concomitant]
     Indication: EPILEPSY
     Dosage: 0.75 MG, EACH EVENING
     Route: 048
  12. SELENICA-R [Concomitant]
     Indication: EPILEPSY
     Dosage: 1 G, EACH EVENING
     Route: 048

REACTIONS (12)
  - AGGRESSION [None]
  - FOOT FRACTURE [None]
  - FRACTURED ISCHIUM [None]
  - HALLUCINATION, AUDITORY [None]
  - HEADACHE [None]
  - IRRITABILITY [None]
  - LUMBAR VERTEBRAL FRACTURE [None]
  - MOOD ALTERED [None]
  - PANIC REACTION [None]
  - PNEUMOTHORAX [None]
  - SUICIDAL IDEATION [None]
  - SUICIDE ATTEMPT [None]
